FAERS Safety Report 8119679-6 (Version None)
Quarter: 2011Q4

REPORT INFORMATION
  Report Type: 
  Country: None (occurrence: None)
  Receive Date: 20111227
  Receipt Date: 20111017
  Transmission Date: 20120403
  Serious: No
  Sender: FDA-Public Use
  Company Number: PHEH2011US05422

PATIENT
  Sex: Female

DRUGS (11)
  1. OMEPRAZOLE (OMEPRAZOLE) CAPSULE [Concomitant]
  2. FLUOXETINE (FLUOXETINE) CAPSULE [Concomitant]
  3. VITAMIN D (ERGOCALCIFEROL) CAPSULE [Concomitant]
  4. VITAMIN B12 (CYANOCOBALAMIN) INJECTION ) [Concomitant]
  5. BACLOFEN [Concomitant]
  6. VESICARE [Concomitant]
  7. NEURONTIN [Concomitant]
  8. NITROFURANTOIN (NITROFURANTOIN) CAPSULE [Concomitant]
  9. GILENYA [Suspect]
     Dosage: 1 DF QD, ORAL
     Route: 048
     Dates: start: 20110701
  10. PROVIGIL [Concomitant]
  11. TENSILON (EDROPHONIUM CHLORIDE) INJECTION [Concomitant]

REACTIONS (4)
  - HYPOAESTHESIA [None]
  - PARAESTHESIA [None]
  - MUSCULOSKELETAL STIFFNESS [None]
  - HEADACHE [None]
